FAERS Safety Report 7683595-4 (Version None)
Quarter: 2011Q3

REPORT INFORMATION
  Report Type: 
  Country: None (occurrence: None)
  Receive Date: 20110815
  Receipt Date: 20110808
  Transmission Date: 20111222
  Serious: Yes (Hospitalization, Disabling)
  Sender: FDA-Public Use
  Company Number: DK-BRACCO-000018

PATIENT
  Sex: Male
  Weight: 58 kg

DRUGS (15)
  1. CONTRAST MEDIA [Suspect]
     Indication: NUCLEAR MAGNETIC RESONANCE IMAGING
     Dates: start: 20010601, end: 20010601
  2. VENOFER [Concomitant]
     Route: 042
  3. OMNISCAN [Suspect]
     Indication: NUCLEAR MAGNETIC RESONANCE IMAGING
     Route: 042
     Dates: start: 20020429, end: 20020429
  4. PHOS-EX [Concomitant]
  5. ACTRAPID [Concomitant]
  6. CARDIL [Concomitant]
  7. CONTRAST MEDIA [Suspect]
     Indication: RENAL TRANSPLANT
     Dates: start: 20010601, end: 20010601
  8. CONTRAST MEDIA [Suspect]
     Indication: VENOUS THROMBOSIS
     Dates: start: 20010601, end: 20010601
  9. CONTRAST MEDIA [Suspect]
     Indication: VENOGRAM
     Dates: start: 20010601, end: 20010601
  10. VITAMINS NOS [Concomitant]
  11. PRILOSEC [Concomitant]
  12. INSULATARD NPH HUMAN [Concomitant]
  13. METOPROLOL SUCCINATE [Concomitant]
  14. MAGNYL [Concomitant]
  15. LEVOTHYROXINE SODIUM [Concomitant]

REACTIONS (15)
  - JOINT CONTRACTURE [None]
  - PIGMENTATION DISORDER [None]
  - SKIN TIGHTNESS [None]
  - COLLAGEN DISORDER [None]
  - INTERSTITIAL LUNG DISEASE [None]
  - SKIN DISORDER [None]
  - SKIN FIBROSIS [None]
  - NEPHROGENIC SYSTEMIC FIBROSIS [None]
  - JOINT STIFFNESS [None]
  - WALKING DISABILITY [None]
  - SCLERODERMA [None]
  - JOINT SWELLING [None]
  - JOINT RANGE OF MOTION DECREASED [None]
  - MYALGIA [None]
  - SKIN ATROPHY [None]
